FAERS Safety Report 10992102 (Version 2)
Quarter: 2015Q2

REPORT INFORMATION
  Report Type: Spontaneous
  Country: US (occurrence: US)
  Receive Date: 20150406
  Receipt Date: 20150525
  Transmission Date: 20150821
  Serious: No
  Sender: FDA-Public Use
  Company Number: US-JNJFOC-20140910927

PATIENT
  Sex: Male
  Weight: 119.75 kg

DRUGS (1)
  1. REMICADE [Suspect]
     Active Substance: INFLIXIMAB
     Indication: PSORIATIC ARTHROPATHY
     Route: 042
     Dates: start: 201406, end: 2014

REACTIONS (3)
  - Nausea [Unknown]
  - Cough [Unknown]
  - Hyperhidrosis [Unknown]
